FAERS Safety Report 4649781-2 (Version None)
Quarter: 2005Q2

REPORT INFORMATION
  Report Type: 
  Country: None (occurrence: None)
  Receive Date: 20050502
  Receipt Date: 20050322
  Transmission Date: 20051028
  Serious: Yes (Other)
  Sender: FDA-Public Use
  Company Number: PHEH2005US03500

PATIENT
  Age: 71 Year
  Sex: Female

DRUGS (5)
  1. ZOMETA [Suspect]
     Indication: METASTASES TO BONE
     Dosage: 4MG QMO
     Route: 042
     Dates: start: 20030801, end: 20041101
  2. FASLODEX [Concomitant]
     Indication: METASTASES TO BONE
     Dosage: UNK MONTHLY
  3. AROMASIN [Concomitant]
     Dates: start: 19990101
  4. FEMARA [Concomitant]
     Dates: start: 19990101
  5. TAMOXIFEN CITRATE [Concomitant]
     Dates: start: 19990101

REACTIONS (5)
  - ASEPTIC NECROSIS BONE [None]
  - BONE FRAGMENTATION [None]
  - IMPAIRED HEALING [None]
  - OSTEONECROSIS [None]
  - TOOTH EXTRACTION [None]
